FAERS Safety Report 9054727 (Version 2)
Quarter: 2013Q1

REPORT INFORMATION
  Report Type: Spontaneous
  Country: FR (occurrence: FR)
  Receive Date: 20130208
  Receipt Date: 20130222
  Transmission Date: 20140127
  Serious: Yes (Hospitalization, Other)
  Sender: FDA-Public Use
  Company Number: PHHY2013FR012203

PATIENT
  Age: 53 Year
  Sex: Male
  Weight: 123 kg

DRUGS (1)
  1. TASIGNA [Suspect]
     Indication: CHRONIC MYELOID LEUKAEMIA
     Dosage: 400 MG, BID
     Route: 048
     Dates: start: 20100501, end: 20130103

REACTIONS (4)
  - Acute coronary syndrome [Unknown]
  - Dyspnoea exertional [Unknown]
  - Fatigue [Unknown]
  - Infarction [Unknown]
